FAERS Safety Report 6640662-1 (Version None)
Quarter: 2010Q1

REPORT INFORMATION
  Report Type: 
  Country: None (occurrence: None)
  Receive Date: 20100302
  Receipt Date: 20100115
  Transmission Date: 20100710
  Serious: No
  Sender: FDA-Public Use
  Company Number: 2010006892

PATIENT
  Age: 39 Year
  Sex: Female

DRUGS (1)
  1. TOVIAZ [Suspect]
     Indication: HYPERTONIC BLADDER
     Dosage: 4 MG, 1X/DAY, ORAL; SEE IMAGE
     Route: 048

REACTIONS (1)
  - URINARY RETENTION [None]
